FAERS Safety Report 8506914-5 (Version None)
Quarter: 2012Q3

REPORT INFORMATION
  Report Type: 
  Country: None (occurrence: None)
  Receive Date: 20120703
  Receipt Date: 20120622
  Transmission Date: 20120928
  Serious: Yes (Hospitalization, Disabling, Other)
  Sender: FDA-Public Use
  Company Number: 2012SP005876

PATIENT
  Age: 19 Year
  Sex: Female
  Weight: 88.4514 kg

DRUGS (1)
  1. NUVARING [Suspect]
     Indication: CONTRACEPTION
     Dates: start: 20080401, end: 20090201

REACTIONS (13)
  - PULMONARY EMBOLISM [None]
  - SYSTEMIC LUPUS ERYTHEMATOSUS [None]
  - ANAEMIA [None]
  - ANGINA PECTORIS [None]
  - TACHYCARDIA [None]
  - ESCHERICHIA URINARY TRACT INFECTION [None]
  - PHARYNGITIS STREPTOCOCCAL [None]
  - PLEURAL EFFUSION [None]
  - PNEUMONIA [None]
  - ATELECTASIS [None]
  - INFLUENZA LIKE ILLNESS [None]
  - INJURY [None]
  - HEART RATE IRREGULAR [None]
